FAERS Safety Report 13094499 (Version 2)
Quarter: 2017Q1

REPORT INFORMATION
  Report Type: Report from Study
  Country: IT (occurrence: IT)
  Receive Date: 20170106
  Receipt Date: 20170118
  Transmission Date: 20170428
  Serious: Yes (Hospitalization)
  Sender: FDA-Public Use
  Company Number: IT-MYLANLABS-2016M1056502

PATIENT

DRUGS (6)
  1. NEBIVOLOL. [Concomitant]
     Active Substance: NEBIVOLOL
     Indication: PRODUCT USED FOR UNKNOWN INDICATION
     Dosage: 5 MG, UNK
     Route: 048
  2. CLEXANE [Concomitant]
     Active Substance: ENOXAPARIN SODIUM
     Indication: PRODUCT USED FOR UNKNOWN INDICATION
     Dosage: UNK
     Route: 058
  3. OMEPRAZOLE. [Concomitant]
     Active Substance: OMEPRAZOLE
     Indication: PRODUCT USED FOR UNKNOWN INDICATION
     Dosage: 10 MG, UNK
     Route: 048
  4. FUROSEMIDE. [Suspect]
     Active Substance: FUROSEMIDE
     Indication: ANURIA
     Dosage: 25 MG DAILY
     Route: 048
     Dates: start: 20160101, end: 20161106
  5. CARDIOASPIRIN [Concomitant]
     Active Substance: ASPIRIN
     Indication: PRODUCT USED FOR UNKNOWN INDICATION
     Dosage: UNK
     Route: 048
  6. ZOFENOPRIL [Suspect]
     Active Substance: ZOFENOPRIL
     Indication: HYPERTENSION
     Dosage: 30 MG DAILY
     Route: 048
     Dates: start: 20160101, end: 20161106

REACTIONS (2)
  - Drop attacks [Unknown]
  - Hyponatraemic syndrome [Unknown]

NARRATIVE: CASE EVENT DATE: 20161106
